FAERS Safety Report 20709601 (Version 1)
Quarter: 2022Q2

REPORT INFORMATION
  Report Type: Report from Study
  Country: IN (occurrence: IN)
  Receive Date: 20220414
  Receipt Date: 20220414
  Transmission Date: 20220721
  Serious: Yes (Hospitalization, Other)
  Sender: FDA-Public Use
  Company Number: IN-NOVARTISPH-NVSC2021IN191252

PATIENT
  Age: 51 Year
  Sex: Male

DRUGS (21)
  1. SIMULECT [Suspect]
     Active Substance: BASILIXIMAB
     Indication: Renal transplant
     Dosage: 20 ML, UNKNOWN
     Dates: start: 20210805, end: 20210809
  2. SIMULECT [Suspect]
     Active Substance: BASILIXIMAB
     Dosage: UNK
     Route: 065
  3. MOFETYL [Concomitant]
     Indication: Product used for unknown indication
     Dosage: 360 MG, BID
     Route: 048
  4. MOFETYL [Concomitant]
     Dosage: 180 MG, QD
     Route: 065
  5. PREDNISOLONE [Concomitant]
     Active Substance: PREDNISOLONE
     Indication: Product used for unknown indication
     Dosage: 30 MG, QD
     Route: 048
  6. VALGANCICLOVIR [Concomitant]
     Active Substance: VALGANCICLOVIR
     Indication: Product used for unknown indication
     Dosage: 450 MG, QD (AFTER MEAL FOR 7 DAYS, ONCE EVERY ALTERNATE DAY)
     Route: 048
  7. SEPTRA DS [Concomitant]
     Active Substance: SULFAMETHOXAZOLE\TRIMETHOPRIM
     Indication: Product used for unknown indication
     Dosage: UNK UNK, QD (AFTER MEAL), 1/2 TAB AT NIGHT
     Route: 048
  8. CALCIUM CARBONATE\CHOLECALCIFEROL [Concomitant]
     Active Substance: CALCIUM CARBONATE\CHOLECALCIFEROL
     Indication: Product used for unknown indication
     Dosage: 500 MG, BID (FOR 7 DAYS 2 HOURS AFTER MEAL)
     Route: 048
  9. NIZONIDE [Concomitant]
     Indication: Product used for unknown indication
     Dosage: 500 MG, BID (FOR 7 DAYS AFTER MEAL)
     Route: 048
  10. PANTOPRAZOLE SODIUM [Concomitant]
     Active Substance: PANTOPRAZOLE SODIUM
     Indication: Product used for unknown indication
     Dosage: 40 MG, BID (FOR 7 DAYS BEFORE MEAL)
     Route: 048
  11. ONDERO [Concomitant]
     Indication: Product used for unknown indication
     Dosage: 5 MG, QD (FOR 7 DAYS BEFORE MEAL)
     Route: 048
  12. RASHFREE [Concomitant]
     Indication: Product used for unknown indication
     Dosage: 20 G, TID (8 DROPS)
     Route: 048
  13. CANDID [Concomitant]
     Indication: Product used for unknown indication
     Dosage: 15 ML, TID MOUTH PAINT (4 DROPS AFTER MEALS FOR 7 DAYS)
     Route: 048
  14. LANTUS [Concomitant]
     Active Substance: INSULIN GLARGINE
     Indication: Product used for unknown indication
     Dosage: 100 IU, QD (14 UNITS AFTER MEAL FOR 7 DAYS)
     Route: 048
  15. SPORLAC [Concomitant]
     Indication: Product used for unknown indication
     Dosage: 1 UNK, BID (FOR 3 DAYS)
     Route: 065
  16. TACROMUS [Concomitant]
     Indication: Product used for unknown indication
     Dosage: 3 MG, QD
     Route: 065
  17. TACROMUS [Concomitant]
     Dosage: 2.75 MG, QD
     Route: 065
  18. CRESP [Concomitant]
     Indication: Product used for unknown indication
     Dosage: UNK, QW
     Route: 058
     Dates: start: 202108
  19. ARACHITOL NANO [Concomitant]
     Indication: Product used for unknown indication
     Dosage: UNK UNK, TID (60 K)
     Route: 065
     Dates: start: 20210901
  20. ARKAMIN [Concomitant]
     Indication: Product used for unknown indication
     Dosage: UNK UNK, BID (1/2 TAB)
     Route: 065
  21. METHYLPREDNISOLONE [Concomitant]
     Active Substance: METHYLPREDNISOLONE
     Indication: Product used for unknown indication
     Dosage: UNK UNK, UNKNOWN (FOR 3 DAYS)
     Route: 065

REACTIONS (11)
  - Kidney transplant rejection [Unknown]
  - Chronic kidney disease [Unknown]
  - Diabetic nephropathy [Unknown]
  - Renal tubular injury [Unknown]
  - Altered state of consciousness [Unknown]
  - Urine output decreased [Unknown]
  - Swelling [Unknown]
  - Vomiting [Unknown]
  - Diarrhoea [Unknown]
  - Blood creatinine increased [Unknown]
  - Dyspnoea [Unknown]

NARRATIVE: CASE EVENT DATE: 20210809
